FAERS Safety Report 17817062 (Version 1)
Quarter: 2020Q2

REPORT INFORMATION
  Report Type: Spontaneous
  Country: US (occurrence: US)
  Receive Date: 20200522
  Receipt Date: 20200522
  Transmission Date: 20200714
  Serious: No
  Sender: FDA-Public Use
  Company Number: US-BAYER-2020-092441

PATIENT
  Age: 42 Year
  Sex: Male

DRUGS (1)
  1. MOXIFLOXACIN ORAL [Suspect]
     Active Substance: MOXIFLOXACIN
     Indication: PYELONEPHRITIS MYCOPLASMAL
     Dosage: UNK
     Route: 048

REACTIONS (2)
  - Product use in unapproved indication [None]
  - Off label use [None]
